FAERS Safety Report 4280378-2 (Version None)
Quarter: 2004Q1

REPORT INFORMATION
  Report Type: 
  Country: None (occurrence: None)
  Receive Date: 20040126
  Receipt Date: 20040113
  Transmission Date: 20041129
  Serious: Yes (Other)
  Sender: FDA-Public Use
  Company Number: HQ6246417JAN2003

PATIENT
  Sex: Female

DRUGS (1)
  1. DIMETAPP [Suspect]
     Indication: NASOPHARYNGITIS
     Dosage: ORAL
     Route: 048
     Dates: start: 19790525

REACTIONS (1)
  - CEREBROVASCULAR ACCIDENT [None]
